FAERS Safety Report 14557280 (Version 6)
Quarter: 2019Q1

REPORT INFORMATION
  Report Type: Spontaneous
  Country: DE (occurrence: DE)
  Receive Date: 20180221
  Receipt Date: 20190319
  Transmission Date: 20190417
  Serious: Yes (Other)
  Sender: FDA-Public Use
  Company Number: DE-MYLANLABS-2018M1011018

PATIENT
  Age: 63 Year
  Sex: Male
  Weight: 119 kg

DRUGS (22)
  1. TRANEXAMIC ACID. [Suspect]
     Active Substance: TRANEXAMIC ACID
     Dosage: 1 G, QD
     Route: 065
     Dates: start: 20170829
  2. HEPARIN-NATRIUM [Interacting]
     Active Substance: HEPARIN SODIUM
     Indication: PRODUCT USED FOR UNKNOWN INDICATION
     Dosage: 55000 IU, QD
  3. CANDESARTAN. [Concomitant]
     Active Substance: CANDESARTAN
     Dosage: 1 UNK, QD 1-0-0
  4. ALLOPURINOL. [Concomitant]
     Active Substance: ALLOPURINOL
     Dosage: 1 UNK, QD, 0-0-1
  5. TRANEXAMIC ACID. [Suspect]
     Active Substance: TRANEXAMIC ACID
     Indication: PRODUCT USED FOR UNKNOWN INDICATION
     Dosage: 10 ML, UNK
     Route: 065
     Dates: start: 20170829, end: 20170829
  6. TRANEXAMIC ACID. [Suspect]
     Active Substance: TRANEXAMIC ACID
     Dosage: 10 ML, UNK
     Route: 065
  7. AMIODARON                          /00133101/ [Concomitant]
     Active Substance: AMIODARONE
     Indication: PRODUCT USED FOR UNKNOWN INDICATION
     Dosage: UNK
  8. NORADRENALIN                       /00127501/ [Concomitant]
     Active Substance: NOREPINEPHRINE\NOREPINEPHRINE BITARTRATE
     Dosage: 20 ?G, UNK
     Route: 065
  9. CELIPROLOL [Concomitant]
     Active Substance: CELIPROLOL
     Dosage: 1UNK, QD 0.5-0-0
     Route: 065
  10. ALLOPURINOL. [Concomitant]
     Active Substance: ALLOPURINOL
     Indication: PRODUCT USED FOR UNKNOWN INDICATION
     Dosage: 300 MG, QD
  11. AMLODIPIN                          /00972401/ [Concomitant]
     Active Substance: AMLODIPINE BESYLATE
     Indication: PRODUCT USED FOR UNKNOWN INDICATION
     Dosage: 5 MG, QD
  12. NORADRENALIN                       /00127501/ [Interacting]
     Active Substance: NOREPINEPHRINE\NOREPINEPHRINE BITARTRATE
     Indication: PRODUCT USED FOR UNKNOWN INDICATION
     Dosage: 0.85 UG/KG/MIN (30 HOURS POST OPERATIVE)
  13. SEVORANE [Concomitant]
     Active Substance: SEVOFLURANE
     Indication: PRODUCT USED FOR UNKNOWN INDICATION
     Dosage: 0.6 VOL %
     Route: 065
     Dates: start: 20170829
  14. NORADRENALIN                       /00127501/ [Interacting]
     Active Substance: NOREPINEPHRINE\NOREPINEPHRINE BITARTRATE
     Dosage: 20 ?G, UNK
     Route: 065
     Dates: start: 20170829
  15. NORADRENALIN                       /00127501/ [Concomitant]
     Active Substance: NOREPINEPHRINE\NOREPINEPHRINE BITARTRATE
     Indication: PRODUCT USED FOR UNKNOWN INDICATION
     Dosage: 0.85 UG/KG/MIN (30 HOURS POST OPERATIVE)
     Route: 065
  16. CANDESARTAN. [Concomitant]
     Active Substance: CANDESARTAN
     Indication: PRODUCT USED FOR UNKNOWN INDICATION
     Dosage: 16 MG, QD
  17. TRANEXAMIC ACID. [Suspect]
     Active Substance: TRANEXAMIC ACID
     Dosage: 1 G, UNK
     Dates: start: 20170829
  18. CELIPROLOL [Concomitant]
     Active Substance: CELIPROLOL
     Indication: PRODUCT USED FOR UNKNOWN INDICATION
     Dosage: 100 MG, QD
  19. STEROFUNDIN [Concomitant]
     Active Substance: CALCIUM CHLORIDE\MAGNESIUM CHLORIDE\POTASSIUM CHLORIDE\SODIUM ACETATE\SODIUM CHLORIDE
     Indication: PRODUCT USED FOR UNKNOWN INDICATION
     Dosage: 1250 ML, UNK
     Route: 065
     Dates: start: 20170829
  20. AMLODIPIN                          /00972401/ [Concomitant]
     Active Substance: AMLODIPINE BESYLATE
     Dosage: 1 UNK, QD 0-0-1
     Route: 065
  21. AMOXICILINA/ CLAVULONICO [Concomitant]
     Indication: GINGIVITIS
     Dosage: UNK
  22. CUSTODIOL                          /04792301/ [Concomitant]
     Active Substance: CALCIUM CL\HISTIDINE\MAGNESIUM\MANNITOL\POTASSIUM\SODIUM CL\TRYPTOPHAN
     Indication: PRODUCT USED FOR UNKNOWN INDICATION
     Dosage: 950 ML, UNK
     Route: 065
     Dates: start: 20170829

REACTIONS (5)
  - Drug ineffective [Unknown]
  - Acute kidney injury [Unknown]
  - Therapeutic response decreased [Unknown]
  - Drug interaction [Unknown]
  - Transaminases increased [Unknown]

NARRATIVE: CASE EVENT DATE: 20170829
